FAERS Safety Report 4714416-7 (Version None)
Quarter: 2005Q3

REPORT INFORMATION
  Report Type: 
  Country: None (occurrence: None)
  Receive Date: 20050712
  Receipt Date: 20050629
  Transmission Date: 20060218
  Serious: Yes (Other)
  Sender: FDA-Public Use
  Company Number: 215014

PATIENT
  Age: 68 Year
  Sex: Female
  Weight: 43.8 kg

DRUGS (6)
  1. RITUXAN [Suspect]
     Indication: NON-HODGKIN'S LYMPHOMA
     Dosage: 450 MG, IV DRIP
     Route: 041
     Dates: start: 20020212, end: 20020319
  2. PIRARUBICIN HYDROCHLORIDE (PIRABUBICIN) [Suspect]
     Indication: NON-HODGKIN'S LYMPHOMA
     Dosage: INTRAVENOUS
     Route: 042
     Dates: start: 20020208, end: 20020208
  3. CYCLOPHOSPHAMIDE [Suspect]
     Indication: NON-HODGKIN'S LYMPHOMA
     Dosage: INTRAVENOUS
     Route: 042
     Dates: start: 20020208, end: 20020208
  4. FILDESIN (VINDESIE SULFATE) [Suspect]
     Indication: NON-HODGKIN'S LYMPHOMA
     Dosage: INTRAVENOUS
     Route: 042
     Dates: start: 20020208, end: 20020208
  5. LOXONIN (LOXOPROFEN SODIUM) [Concomitant]
  6. DEXCHLORPHENIRAMINE MALEATE [Concomitant]

REACTIONS (2)
  - NEUTROPENIA [None]
  - WHITE BLOOD CELL COUNT DECREASED [None]
